FAERS Safety Report 6067750-5 (Version None)
Quarter: 2009Q1

REPORT INFORMATION
  Report Type: 
  Country: None (occurrence: None)
  Receive Date: 20090205
  Receipt Date: 20090127
  Transmission Date: 20090719
  Serious: Yes (Hospitalization, Other)
  Sender: FDA-Public Use
  Company Number: DE-ABBOTT-09P-062-0499872-00

PATIENT
  Sex: Female

DRUGS (4)
  1. HUMIRA [Suspect]
     Indication: CROHN'S DISEASE
     Route: 058
     Dates: start: 20071122, end: 20081003
  2. CORTISONE [Concomitant]
     Indication: CROHN'S DISEASE
     Route: 065
  3. MORPHINE [Concomitant]
     Indication: PAIN
     Route: 065
  4. ANALGESICS [Concomitant]
     Indication: PAIN
     Route: 065

REACTIONS (2)
  - CROHN'S DISEASE [None]
  - FISTULA [None]
